FAERS Safety Report 8151265-4 (Version None)
Quarter: 2012Q1

REPORT INFORMATION
  Report Type: 
  Country: None (occurrence: None)
  Receive Date: 20120220
  Receipt Date: 20120208
  Transmission Date: 20120608
  Serious: Yes (Hospitalization, Other)
  Sender: FDA-Public Use
  Company Number: US-ELI_LILLY_AND_COMPANY-US201201003108

PATIENT
  Sex: Female

DRUGS (13)
  1. FORTEO [Suspect]
     Indication: OSTEOPOROSIS
     Dosage: 20 UG, QD
     Route: 065
     Dates: start: 20070401, end: 20090401
  2. EVISTA [Suspect]
     Dosage: 60 MG, 2/W
     Route: 048
     Dates: start: 20110909
  3. CARTIA XT [Concomitant]
  4. ZINC SULFATE [Concomitant]
  5. EVISTA [Suspect]
     Dosage: 60 MG, 2/W
     Route: 048
     Dates: start: 20111201
  6. XGEVA [Concomitant]
  7. FISH OIL [Concomitant]
  8. TYLENOL                                 /SCH/ [Concomitant]
  9. CALCIUM [Concomitant]
  10. ASPIRIN [Concomitant]
     Dosage: 81 MG, QOD
  11. MAGNESIUM [Concomitant]
  12. FORTEO [Suspect]
     Dosage: 20 UG, QD
     Dates: start: 20111101
  13. VITAMIN D [Concomitant]
     Dosage: 2000 IU, UNK

REACTIONS (12)
  - HIP FRACTURE [None]
  - IRRITABLE BOWEL SYNDROME [None]
  - LUNG DISORDER [None]
  - DRUG HYPERSENSITIVITY [None]
  - CARDIAC FAILURE CONGESTIVE [None]
  - FALL [None]
  - BACK PAIN [None]
  - ATRIAL FIBRILLATION [None]
  - DRUG PRESCRIBING ERROR [None]
  - INTENTIONAL DRUG MISUSE [None]
  - PNEUMONIA [None]
  - COUGH [None]
